FAERS Safety Report 6566803-2 (Version None)
Quarter: 2010Q1

REPORT INFORMATION
  Report Type: 
  Country: None (occurrence: None)
  Receive Date: 20100202
  Receipt Date: 20100125
  Transmission Date: 20100710
  Serious: Yes (Disabling, Other)
  Sender: FDA-Public Use
  Company Number: US-B.I. PHARMACEUTICALS,INC./RIDGEFIELD-2010-BP-00935BP

PATIENT
  Age: 89 Year
  Sex: Male
  Weight: 63.5 kg

DRUGS (3)
  1. MICARDIS [Suspect]
  2. ZICAM COLD REMEDY GEL SWABS [Suspect]
     Dates: start: 20080216
  3. NEXIUM [Concomitant]

REACTIONS (2)
  - AGEUSIA [None]
  - ANOSMIA [None]
